FAERS Safety Report 24005134 (Version 1)
Quarter: 2024Q2

REPORT INFORMATION
  Report Type: Spontaneous
  Country: CN (occurrence: CN)
  Receive Date: 20240624
  Receipt Date: 20240624
  Transmission Date: 20240716
  Serious: Yes (Hospitalization, Other)
  Sender: FDA-Public Use
  Company Number: CN-BAYER-2024A089639

PATIENT
  Age: 51 Year
  Sex: Male
  Weight: 86 kg

DRUGS (4)
  1. ULTRAVIST [Suspect]
     Active Substance: IOPROMIDE
     Indication: Angiocardiogram
     Dosage: 100 ML, ONCE, PUMP INJECTION
     Route: 050
     Dates: start: 20240618, end: 20240618
  2. ULTRAVIST [Suspect]
     Active Substance: IOPROMIDE
     Indication: Computerised tomogram head
  3. ULTRAVIST [Suspect]
     Active Substance: IOPROMIDE
     Indication: Computerised tomogram neck
  4. ULTRAVIST [Suspect]
     Active Substance: IOPROMIDE
     Indication: Dizziness

REACTIONS (3)
  - Rash erythematous [Recovered/Resolved]
  - Skin warm [Recovered/Resolved]
  - Respiratory rate increased [None]

NARRATIVE: CASE EVENT DATE: 20240618
